FAERS Safety Report 8479746-4 (Version None)
Quarter: 2012Q2

REPORT INFORMATION
  Report Type: 
  Country: None (occurrence: None)
  Receive Date: 20120629
  Receipt Date: 20120620
  Transmission Date: 20120825
  Serious: Yes (Hospitalization, Other)
  Sender: FDA-Public Use
  Company Number: BR-ASTRAZENECA-2012SE42058

PATIENT
  Age: 67 Year
  Sex: Male
  Weight: 70 kg

DRUGS (5)
  1. CRESTOR [Suspect]
     Route: 048
     Dates: start: 20110101
  2. ISOSORBIDE MONONITRATE [Concomitant]
     Route: 048
  3. BRILINTA [Suspect]
     Indication: VASCULAR GRAFT OCCLUSION
     Route: 048
     Dates: start: 20120601
  4. ASPIRIN PREVENT [Concomitant]
     Route: 048
  5. VASTAREL [Concomitant]
     Route: 048

REACTIONS (3)
  - OFF LABEL USE [None]
  - CORONARY ARTERY OCCLUSION [None]
  - VASCULAR GRAFT OCCLUSION [None]
